FAERS Safety Report 4759869-3 (Version None)
Quarter: 2005Q3

REPORT INFORMATION
  Report Type: 
  Country: None (occurrence: None)
  Receive Date: 20050831
  Receipt Date: 20050831
  Transmission Date: 20060218
  Serious: Yes (Hospitalization)
  Sender: FDA-Public Use
  Company Number: None

PATIENT
  Age: 73 Year
  Sex: Male

DRUGS (14)
  1. WARFARIN 5MG; 2.5 MG [Suspect]
     Dosage: 5 MG;2.5 MG  DAILY; SUNDAYO  PO
     Route: 048
  2. IBUPROFEN [Suspect]
     Dosage: 400 MG BID PO
     Route: 048
  3. COUMADIN [Concomitant]
  4. LOPRESSOR [Concomitant]
  5. CIPRO [Concomitant]
  6. SULFAMETHOXAZOLE/TRIMETHOPRIM -BACTRIM DS- [Concomitant]
  7. AMBIEN [Concomitant]
  8. CELEXA [Concomitant]
  9. KLONOPIN [Concomitant]
  10. MOTRIN [Concomitant]
  11. CALCIUM -PHOS-LO- [Concomitant]
  12. SINEMET CR [Concomitant]
  13. DIALYVITE [Concomitant]
  14. PROMETHAZINE -PHENERGAN- [Concomitant]

REACTIONS (9)
  - ASTHENIA [None]
  - FAECES DISCOLOURED [None]
  - GASTRIC DISORDER [None]
  - GASTRIC ULCER [None]
  - GASTRITIS [None]
  - HAEMATOCRIT DECREASED [None]
  - HAEMOGLOBIN DECREASED [None]
  - HYPOTENSION [None]
  - INTERNATIONAL NORMALISED RATIO INCREASED [None]
